FAERS Safety Report 9230062 (Version 1)
Quarter: 2013Q2

REPORT INFORMATION
  Report Type: Spontaneous
  Country: US (occurrence: None)
  Receive Date: 20130412
  Receipt Date: 20130412
  Transmission Date: 20140414
  Serious: Yes (Hospitalization)
  Sender: FDA-Public Use
  Company Number: None

PATIENT
  Age: 78 Year
  Sex: Male
  Weight: 97.7 kg

DRUGS (2)
  1. BORTEZOMIB [Suspect]
     Indication: MANTLE CELL LYMPHOMA
     Dosage: 2.9 MG  DAY 1, 8, 15, 22   IV
     Route: 042
     Dates: start: 20120516, end: 20120905
  2. TEMSIROLIMUS [Suspect]
     Indication: MANTLE CELL LYMPHOMA
     Dosage: 20 MG  DAY 1, 8, 15, 22   IV
     Route: 042
     Dates: start: 20120516, end: 20120905

REACTIONS (5)
  - Bronchitis [None]
  - Febrile neutropenia [None]
  - Pseudomonal sepsis [None]
  - Pseudomonal bacteraemia [None]
  - Bronchitis [None]
